FAERS Safety Report 7946009-2 (Version None)
Quarter: 2011Q4

REPORT INFORMATION
  Report Type: 
  Country: None (occurrence: None)
  Receive Date: 20111129
  Receipt Date: 20111118
  Transmission Date: 20120403
  Serious: Yes (Hospitalization)
  Sender: FDA-Public Use
  Company Number: US-GLAXOSMITHKLINE-A0784456A

PATIENT
  Age: 74 Year
  Sex: Female
  Weight: 61.8 kg

DRUGS (3)
  1. ACTOS [Concomitant]
     Dates: start: 20030501, end: 20060101
  2. AVANDIA [Suspect]
     Indication: TYPE 2 DIABETES MELLITUS
     Dosage: 8MG PER DAY
     Route: 048
     Dates: start: 20020101
  3. GLYBURIDE [Concomitant]
     Dates: start: 19860101

REACTIONS (3)
  - CORONARY ARTERY DISEASE [None]
  - MYOCARDIAL INFARCTION [None]
  - CARDIAC DISORDER [None]
